FAERS Safety Report 21733719 (Version 1)
Quarter: 2022Q4

REPORT INFORMATION
  Report Type: Spontaneous
  Country: US (occurrence: None)
  Receive Date: 20221215
  Receipt Date: 20221215
  Transmission Date: 20230113
  Serious: No
  Sender: FDA-Public Use
  Company Number: None

PATIENT
  Age: 25 Year
  Sex: Male
  Weight: 62 kg

DRUGS (7)
  1. ARMODAFINIL [Suspect]
     Active Substance: ARMODAFINIL
     Indication: Narcolepsy
     Dosage: FREQUENCY : DAILY;?
     Route: 048
  2. RITALIN [Concomitant]
     Active Substance: METHYLPHENIDATE HYDROCHLORIDE
  3. SYMBICORT [Concomitant]
     Active Substance: BUDESONIDE\FORMOTEROL FUMARATE DIHYDRATE
  4. TOPIRAMATE [Concomitant]
     Active Substance: TOPIRAMATE
  5. DEPAKOTE ER [Concomitant]
     Active Substance: DIVALPROEX SODIUM
  6. CLONAZEPAM [Concomitant]
     Active Substance: CLONAZEPAM
  7. VENLAFAXINE HYDROCHLORIDE [Concomitant]
     Active Substance: VENLAFAXINE HYDROCHLORIDE

REACTIONS (1)
  - Rash [None]
